FAERS Safety Report 6247222-5 (Version None)
Quarter: 2009Q2

REPORT INFORMATION
  Report Type: 
  Country: None (occurrence: None)
  Receive Date: 20090626
  Receipt Date: 20090617
  Transmission Date: 20091009
  Serious: Yes (Hospitalization)
  Sender: FDA-Public Use
  Company Number: US-PFIZER INC-2008012561

PATIENT
  Sex: Male
  Weight: 91.61 kg

DRUGS (13)
  1. SUTENT [Suspect]
     Indication: COLON CANCER METASTATIC
     Route: 048
     Dates: start: 20070309, end: 20070315
  2. IRINOTECAN HYDROCHLORIDE [Suspect]
     Indication: COLON CANCER METASTATIC
     Route: 042
     Dates: start: 20070309
  3. CETUXIMAB [Suspect]
     Indication: COLON CANCER METASTATIC
     Route: 042
     Dates: start: 20070309
  4. CETUXIMAB [Suspect]
     Route: 042
     Dates: start: 20070323
  5. OMEPRAZOLE [Concomitant]
     Dosage: 20 MG, UNK
     Dates: start: 20070316
  6. ZOFRAN [Concomitant]
     Dosage: UNK
     Dates: start: 20070314
  7. REGLAN [Concomitant]
     Dosage: PRN
     Dates: start: 20070316
  8. ATIVAN [Concomitant]
     Dosage: 1 MG, AS NEEDED
     Dates: start: 20070316
  9. LEXAPRO [Concomitant]
     Dosage: 10 MG, UNK
     Dates: start: 20070309
  10. COLACE [Concomitant]
     Dosage: UNK
     Dates: start: 20070316
  11. SENNA [Concomitant]
     Dosage: UNK
     Dates: start: 20070316
  12. OXYCONTIN [Concomitant]
     Dosage: 20 MG, 2X/DAY
     Dates: start: 20070309
  13. OXYCODONE HCL [Concomitant]
     Dosage: 5-10MG
     Dates: start: 20070306

REACTIONS (1)
  - INTESTINAL OBSTRUCTION [None]
